FAERS Safety Report 4413924-6 (Version None)
Quarter: 2004Q3

REPORT INFORMATION
  Report Type: 
  Country: None (occurrence: None)
  Receive Date: 20040803
  Receipt Date: 20030819
  Transmission Date: 20050211
  Serious: Yes (Death, Hospitalization)
  Sender: FDA-Public Use
  Company Number: PHBS2003SE08776

PATIENT
  Age: 70 Year
  Sex: Male

DRUGS (4)
  1. TEGRETOL [Suspect]
     Indication: CONVULSION
     Dosage: 250 MG, TID
     Route: 054
     Dates: start: 20030711, end: 20030711
  2. TEGRETOL [Suspect]
     Dosage: 200 MG, TID
     Route: 048
     Dates: start: 20030712, end: 20030815
  3. ALVEDON [Concomitant]
     Dosage: WHEN REQUIRED
     Route: 065
     Dates: start: 20030701
  4. TROMBYL [Concomitant]
     Dosage: 75 MG
     Route: 065
     Dates: start: 20030701

REACTIONS (10)
  - DEATH [None]
  - DIARRHOEA [None]
  - EXANTHEM [None]
  - FALL [None]
  - GAIT DISTURBANCE [None]
  - HEPATIC FAILURE [None]
  - LABORATORY TEST ABNORMAL [None]
  - LOSS OF CONSCIOUSNESS [None]
  - PNEUMONIA [None]
  - PYREXIA [None]
